FAERS Safety Report 5565319-X (Version None)
Quarter: 2007Q4

REPORT INFORMATION
  Report Type: 
  Country: None (occurrence: None)
  Receive Date: 20071218
  Receipt Date: 20071204
  Transmission Date: 20080405
  Serious: Yes (Other)
  Sender: FDA-Public Use
  Company Number: US-PFIZER INC-2007102877

PATIENT
  Sex: Male
  Weight: 91.2 kg

DRUGS (14)
  1. LIPITOR [Suspect]
     Indication: HYPERCHOLESTEROLAEMIA
     Route: 048
  2. PLAVIX [Concomitant]
  3. NITROGLYCERIN [Concomitant]
     Route: 060
  4. METOPROLOL SUCCINATE [Concomitant]
     Dosage: TEXT:50 IN THE AM AND 25 ON THE PM
  5. TIMOLOL MALEATE [Concomitant]
     Route: 047
  6. DOXAZOSIN MESYLATE [Concomitant]
  7. ACETYLSALICYLIC ACID SRT [Concomitant]
  8. TOPROL-XL [Concomitant]
  9. FISH OIL [Concomitant]
     Dosage: FREQ:1 PER DAY
  10. IBUPROFEN [Concomitant]
     Dosage: FREQ:200MG PRN
  11. MULTI-VITAMINS [Concomitant]
  12. ZETIA [Concomitant]
  13. COENZYME Q10 [Concomitant]
  14. MUCOMYST [Concomitant]
     Dosage: TEXT:600MG BID OR TID

REACTIONS (11)
  - ANGINA PECTORIS [None]
  - ANGIOPLASTY [None]
  - BLOOD THYROID STIMULATING HORMONE INCREASED [None]
  - GAIT DISTURBANCE [None]
  - HYPERTENSION [None]
  - INTERSTITIAL LUNG DISEASE [None]
  - KNEE ARTHROPLASTY [None]
  - MYOCARDIAL INFARCTION [None]
  - NEUROPATHY PERIPHERAL [None]
  - PULMONARY FIBROSIS [None]
  - STENT PLACEMENT [None]
